FAERS Safety Report 4841018-4 (Version None)
Quarter: 2005Q4

REPORT INFORMATION
  Report Type: 
  Country: None (occurrence: None)
  Receive Date: 20051130
  Receipt Date: 20050826
  Transmission Date: 20060501
  Serious: No
  Sender: FDA-Public Use
  Company Number: US-BRISTOL-MYERS SQUIBB COMPANY-13091178

PATIENT
  Age: 41 Year
  Sex: Male
  Weight: 149 kg

DRUGS (4)
  1. ABILIFY [Suspect]
     Indication: BIPOLAR DISORDER
     Dates: start: 20050825
  2. DEPAKOTE ER [Concomitant]
     Dosage: DOSE VALUE:  500 IN THE AM, AND 750 IN THE PM
  3. ADDERALL XR 10 [Concomitant]
  4. LEVAQUIN [Concomitant]

REACTIONS (3)
  - ANXIETY [None]
  - DIZZINESS [None]
  - FATIGUE [None]
